FAERS Safety Report 8376780-X (Version None)
Quarter: 2012Q2

REPORT INFORMATION
  Report Type: 
  Country: None (occurrence: None)
  Receive Date: 20120522
  Receipt Date: 20120305
  Transmission Date: 20120825
  Serious: No
  Sender: FDA-Public Use
  Company Number: US-BRISTOL-MYERS SQUIBB COMPANY-16432775

PATIENT
  Age: 5 Decade
  Sex: Female

DRUGS (3)
  1. DIOVAN [Suspect]
  2. ONGLYZA [Suspect]
  3. METFORMIN HCL [Suspect]

REACTIONS (1)
  - PRURITUS [None]
